FAERS Safety Report 11522186 (Version 1)
Quarter: 2015Q3

REPORT INFORMATION
  Report Type: Spontaneous
  Country: US (occurrence: US)
  Receive Date: 20150918
  Receipt Date: 20150918
  Transmission Date: 20151125
  Serious: Yes (Other)
  Sender: FDA-Public Use
  Company Number: US-ROCHE-681022

PATIENT
  Age: 57 Year
  Sex: Female
  Weight: 45.4 kg

DRUGS (4)
  1. EVISTA [Concomitant]
     Active Substance: RALOXIFENE HYDROCHLORIDE
     Route: 065
  2. COPEGUS [Suspect]
     Active Substance: RIBAVIRIN
     Indication: HEPATITIS C
     Dosage: IN DIVIDED DOSES.
     Route: 048
     Dates: start: 20100125, end: 20100405
  3. PEGASYS [Suspect]
     Active Substance: PEGINTERFERON ALFA-2A
     Indication: HEPATITIS C
     Dosage: FORM: PRE-FILLED SYRINGE. ROUTE: INJECTION.
     Route: 050
  4. PEGASYS [Suspect]
     Active Substance: PEGINTERFERON ALFA-2A
     Dosage: DOSE REDUCED
     Route: 050
     Dates: start: 20100305, end: 20100405

REACTIONS (19)
  - Red blood cell count decreased [Recovering/Resolving]
  - Rash [Recovered/Resolved]
  - Injection site pain [Unknown]
  - Dyspnoea [Unknown]
  - Urinary hesitation [Unknown]
  - Peripheral swelling [Unknown]
  - Alopecia [Unknown]
  - Ill-defined disorder [Unknown]
  - Nausea [Not Recovered/Not Resolved]
  - Pain in extremity [Not Recovered/Not Resolved]
  - Rash pruritic [Recovered/Resolved]
  - White blood cell count decreased [Recovering/Resolving]
  - Insomnia [Not Recovered/Not Resolved]
  - Scar [Unknown]
  - Fatigue [Not Recovered/Not Resolved]
  - Arthritis [Unknown]
  - Memory impairment [Unknown]
  - Weight increased [Unknown]
  - Urine odour abnormal [Unknown]

NARRATIVE: CASE EVENT DATE: 20100120
